FAERS Safety Report 4864107-7 (Version None)
Quarter: 2005Q4

REPORT INFORMATION
  Report Type: 
  Country: None (occurrence: None)
  Receive Date: 20051222
  Receipt Date: 20051216
  Transmission Date: 20060501
  Serious: Yes (Other)
  Sender: FDA-Public Use
  Company Number: US-GLAXOSMITHKLINE-A0586494A

PATIENT
  Age: 8 Month
  Sex: Male

DRUGS (4)
  1. CEFUROXIME AXETIL [Suspect]
     Indication: OTITIS MEDIA
     Dates: start: 20051025, end: 20051103
  2. TYLENOL W/ CODEINE [Concomitant]
     Dates: start: 20051025, end: 20051025
  3. INFANT TYLENOL [Concomitant]
     Dosage: 60MG PER DAY
     Route: 048
     Dates: start: 20041025, end: 20051025
  4. INFLUENZA VACCINE [Concomitant]
     Dates: start: 20051025, end: 20051025

REACTIONS (1)
  - STARING [None]
